FAERS Safety Report 5129877-1 (Version None)
Quarter: 2006Q4

REPORT INFORMATION
  Report Type: 
  Country: None (occurrence: None)
  Receive Date: 20061013
  Receipt Date: 20060922
  Transmission Date: 20070319
  Serious: Yes (Death)
  Sender: FDA-Public Use
  Company Number: FR200609006055

PATIENT
  Age: 67 Year
  Sex: Male

DRUGS (2)
  1. CIALIS [Suspect]
     Indication: ERECTILE DYSFUNCTION
     Dosage: 20 MG,  AS NEEDED, ORAL
     Route: 048
     Dates: start: 20051201
  2. LEXOMIL (BROMAZEPAM) [Concomitant]

REACTIONS (1)
  - DEATH [None]
